FAERS Safety Report 25256581 (Version 2)
Quarter: 2025Q2

REPORT INFORMATION
  Report Type: Spontaneous
  Country: US (occurrence: US)
  Receive Date: 20250430
  Receipt Date: 20250528
  Transmission Date: 20250717
  Serious: Yes (Other)
  Sender: GLAND PHARMA LTD
  Company Number: US-GLANDPHARMA-US-2025GLNLIT01138

PATIENT
  Age: 74 Year
  Sex: Male
  Weight: 181 kg

DRUGS (4)
  1. FLUOROURACIL [Suspect]
     Active Substance: FLUOROURACIL
     Indication: Actinic keratosis
     Route: 061
  2. FLUOROURACIL [Suspect]
     Active Substance: FLUOROURACIL
     Indication: Squamous cell carcinoma
  3. TACROLIMUS [Concomitant]
     Active Substance: TACROLIMUS
     Indication: Lung transplant
     Route: 048
  4. PREDNISONE [Concomitant]
     Active Substance: PREDNISONE
     Indication: Lung transplant
     Route: 048

REACTIONS (3)
  - Squamous cell carcinoma of skin [Recovered/Resolved]
  - Condition aggravated [Recovered/Resolved]
  - Product use in unapproved indication [Unknown]
